FAERS Safety Report 6999622-3 (Version None)
Quarter: 2010Q3

REPORT INFORMATION
  Report Type: 
  Country: None (occurrence: None)
  Receive Date: 20100920
  Receipt Date: 20100326
  Transmission Date: 20110219
  Serious: No
  Sender: FDA-Public Use
  Company Number: US-ASTRAZENECA-2010SE13504

PATIENT
  Sex: Male

DRUGS (7)
  1. SEROQUEL [Suspect]
     Indication: BIPOLAR DISORDER
     Route: 048
  2. SEROQUEL [Suspect]
     Indication: ATTENTION DEFICIT/HYPERACTIVITY DISORDER
     Route: 048
  3. SEROQUEL [Suspect]
     Route: 048
     Dates: start: 20090301
  4. SEROQUEL [Suspect]
     Route: 048
     Dates: start: 20090301
  5. TRILEPTAL [Concomitant]
  6. PRAVASTATIN [Concomitant]
     Indication: BLOOD CHOLESTEROL
  7. PROPRANOLOL [Concomitant]

REACTIONS (4)
  - PRURITUS [None]
  - SPEECH DISORDER [None]
  - SWOLLEN TONGUE [None]
  - WEIGHT INCREASED [None]
